FAERS Safety Report 24100073 (Version 1)
Quarter: 2024Q3

REPORT INFORMATION
  Report Type: Spontaneous
  Country: DE (occurrence: DE)
  Receive Date: 20240717
  Receipt Date: 20240717
  Transmission Date: 20241017
  Serious: Yes (Hospitalization, Other)
  Sender: EMD SERONO INC
  Company Number: None

PATIENT
  Age: 27 Year
  Sex: Female

DRUGS (3)
  1. CHORIOGONADOTROPIN ALFA [Suspect]
     Active Substance: CHORIOGONADOTROPIN ALFA
     Indication: Assisted reproductive technology
  2. FOLLITROPIN BETA [Suspect]
     Active Substance: FOLLITROPIN BETA
     Indication: Assisted reproductive technology
  3. PROGESTERONE [Suspect]
     Active Substance: PROGESTERONE
     Indication: Assisted reproductive technology

REACTIONS (1)
  - Ovarian abscess [Recovered/Resolved]

NARRATIVE: CASE EVENT DATE: 20240624
